FAERS Safety Report 22240533 (Version 1)
Quarter: 2023Q2

REPORT INFORMATION
  Report Type: Spontaneous
  Country: ES (occurrence: None)
  Receive Date: 20230421
  Receipt Date: 20230421
  Transmission Date: 20230722
  Serious: Yes (Other)
  Sender: FDA-Public Use
  Company Number: 2023A088503

PATIENT
  Age: 47 Year
  Sex: Female

DRUGS (3)
  1. OMEPRAZOLE [Suspect]
     Active Substance: OMEPRAZOLE
     Route: 048
  2. METAMIZOLE [Concomitant]
     Active Substance: METAMIZOLE
     Dosage: 575MG (ONE CAPSULE EVERY EIGHT HOURS)
  3. METRONIDAZOLE [Concomitant]
     Active Substance: METRONIDAZOLE
     Dosage: 125MG (TWO TABLETS EVERY EIGHT HOURS)

REACTIONS (6)
  - Angioedema [Unknown]
  - Oedema peripheral [Unknown]
  - Pruritus [Unknown]
  - Erythema [Unknown]
  - Aphonia [Unknown]
  - Pharyngeal disorder [Unknown]
